FAERS Safety Report 8584038-9 (Version None)
Quarter: 2012Q3

REPORT INFORMATION
  Report Type: 
  Country: None (occurrence: None)
  Receive Date: 20120810
  Receipt Date: 20120730
  Transmission Date: 20120928
  Serious: No
  Sender: FDA-Public Use
  Company Number: US-009507513-1207USA002245

PATIENT

DRUGS (10)
  1. PERCOCET [Concomitant]
     Dosage: 10-325 MG
  2. OXYCONTIN [Concomitant]
     Dosage: 10 MG, UNK
  3. TESTOSTERONE [Concomitant]
  4. RIBAPAK MIS [Concomitant]
     Dosage: 600 PER DAY
  5. NEXIUM [Concomitant]
     Dosage: 40 MG, UNK
  6. PEGASYS [Concomitant]
  7. MICARDIS [Concomitant]
     Dosage: 20 MG, UNK
  8. VICTRELIS [Suspect]
     Dosage: 800 MG, TID
     Route: 048
  9. KLONOPIN [Concomitant]
     Dosage: 1 MG, UNK
  10. ZOLOFT [Concomitant]

REACTIONS (9)
  - ABDOMINAL DISCOMFORT [None]
  - FEELING ABNORMAL [None]
  - INFLUENZA LIKE ILLNESS [None]
  - ABNORMAL BEHAVIOUR [None]
  - MOOD SWINGS [None]
  - CHILLS [None]
  - AGGRESSION [None]
  - SOMNOLENCE [None]
  - COLD SWEAT [None]
